FAERS Safety Report 13197554 (Version 3)
Quarter: 2017Q1

REPORT INFORMATION
  Report Type: Spontaneous
  Country: US (occurrence: US)
  Receive Date: 20170208
  Receipt Date: 20170316
  Transmission Date: 20170428
  Serious: Yes (Other)
  Sender: FDA-Public Use
  Company Number: US-PFIZER INC-2017056057

PATIENT
  Age: 28 Year
  Sex: Male

DRUGS (2)
  1. DILANTIN-125 [Suspect]
     Active Substance: PHENYTOIN
     Indication: CONVULSION PROPHYLAXIS
     Dosage: UNK
     Route: 048
     Dates: start: 2010
  2. DILANTIN-125 [Suspect]
     Active Substance: PHENYTOIN
     Indication: SEIZURE

REACTIONS (1)
  - Cerebellar atrophy [Unknown]

NARRATIVE: CASE EVENT DATE: 201510
